FAERS Safety Report 6883036-0 (Version None)
Quarter: 2010Q3

REPORT INFORMATION
  Report Type: 
  Country: None (occurrence: None)
  Receive Date: 20100727
  Receipt Date: 20100720
  Transmission Date: 20110219
  Serious: Yes (Other)
  Sender: FDA-Public Use
  Company Number: 015810

PATIENT
  Age: 75 Year
  Sex: Male

DRUGS (7)
  1. KEPPRA [Suspect]
     Dosage: (ORAL)
     Route: 048
     Dates: start: 20100520, end: 20100531
  2. DIFFU K [Concomitant]
  3. LASIX [Concomitant]
  4. NOCTRAN 10 [Concomitant]
  5. PREVISCAN [Concomitant]
  6. CORDARONE [Concomitant]
  7. CRESTOR [Concomitant]

REACTIONS (2)
  - AGRANULOCYTOSIS [None]
  - WHITE BLOOD CELL COUNT DECREASED [None]
